FAERS Safety Report 4337682-9 (Version None)
Quarter: 2004Q2

REPORT INFORMATION
  Report Type: 
  Country: None (occurrence: None)
  Receive Date: 20040413
  Receipt Date: 20040202
  Transmission Date: 20050107
  Serious: Yes (Hospitalization)
  Sender: FDA-Public Use
  Company Number: 200411210JP

PATIENT
  Age: 58 Year
  Sex: Female

DRUGS (8)
  1. KETEK [Suspect]
     Indication: BRONCHITIS ACUTE
     Route: 048
     Dates: start: 20040104, end: 20040107
  2. THEOLONG [Suspect]
     Indication: ASTHMA
     Route: 048
     Dates: start: 20040104, end: 20040107
  3. COUGHCODE [Concomitant]
     Indication: BRONCHITIS
     Route: 048
     Dates: start: 20040104
  4. DIPYRIDAMOLE [Concomitant]
     Indication: BRONCHITIS ACUTE
     Route: 048
     Dates: start: 20040107, end: 20040107
  5. DIOVAN [Concomitant]
     Indication: HYPERTENSION
     Route: 048
  6. BUFFERIN [Concomitant]
     Indication: ANTIPLATELET THERAPY
     Route: 048
  7. THYRADIN S [Concomitant]
     Indication: THYROID DISORDER
     Route: 048
  8. LENDORM [Concomitant]
     Indication: INSOMNIA
     Route: 048

REACTIONS (2)
  - CARDIOMYOPATHY [None]
  - ELECTROCARDIOGRAM T WAVE INVERSION [None]
